FAERS Safety Report 9199840 (Version 1)
Quarter: 2013Q1

REPORT INFORMATION
  Report Type: Spontaneous
  Country: US (occurrence: US)
  Receive Date: 20130329
  Receipt Date: 20130329
  Transmission Date: 20140127
  Serious: No
  Sender: FDA-Public Use
  Company Number: US-GALDERMA-US13000774

PATIENT
  Sex: Female

DRUGS (2)
  1. DIFFERIN [Suspect]
     Indication: ACNE
     Dosage: 0.1%
     Route: 061
     Dates: start: 2010
  2. UNSPECIFIED MOISTURIZER [Concomitant]
     Route: 061

REACTIONS (3)
  - Skin burning sensation [Recovered/Resolved]
  - Pain of skin [Recovered/Resolved]
  - Erythema [Recovered/Resolved]
